FAERS Safety Report 14745820 (Version 4)
Quarter: 2018Q4

REPORT INFORMATION
  Report Type: Report from Study
  Country: AU (occurrence: AU)
  Receive Date: 20180411
  Receipt Date: 20181011
  Transmission Date: 20190204
  Serious: Yes (Other)
  Sender: FDA-Public Use
  Company Number: AU-ROCHE-2102552

PATIENT
  Age: 47 Year
  Sex: Female

DRUGS (2)
  1. OCREVUS [Suspect]
     Active Substance: OCRELIZUMAB
     Route: 042
     Dates: start: 20180418
  2. OCREVUS [Suspect]
     Active Substance: OCRELIZUMAB
     Indication: RELAPSING-REMITTING MULTIPLE SCLEROSIS
     Dosage: 1A DOSE?1B DOSE ON 30/OCT/2017.
     Route: 042
     Dates: start: 20171016

REACTIONS (4)
  - Muscular weakness [Recovering/Resolving]
  - Neurological infection [Recovering/Resolving]
  - Asthenia [Recovering/Resolving]
  - Ear pain [Unknown]

NARRATIVE: CASE EVENT DATE: 201712
